FAERS Safety Report 15965361 (Version 2)
Quarter: 2020Q4

REPORT INFORMATION
  Report Type: Spontaneous
  Country: PL (occurrence: PL)
  Receive Date: 20190215
  Receipt Date: 20201109
  Transmission Date: 20210113
  Serious: Yes (Hospitalization, Other)
  Sender: FDA-Public Use
  Company Number: PL-AUROBINDO-AUR-APL-2018-007806

PATIENT
  Age: 59 Year
  Sex: Male

DRUGS (10)
  1. CORATOR [Suspect]
     Active Substance: ATORVASTATIN CALCIUM
     Indication: PRODUCT USED FOR UNKNOWN INDICATION
     Dosage: UNK
     Route: 065
  2. EXVIERA [Interacting]
     Active Substance: DASABUVIR
     Indication: PRODUCT USED FOR UNKNOWN INDICATION
     Dosage: UNK
     Route: 065
  3. VIEKIRAX [Interacting]
     Active Substance: OMBITASVIR\PARITAPREVIR\RITONAVIR
     Indication: CHRONIC HEPATITIS C
     Dosage: UNK
     Route: 065
  4. ATORVASTATIN [Interacting]
     Active Substance: ATORVASTATIN
     Indication: CARDIAC DISORDER
     Dosage: 4 WEEKS BEFORE ADR - HOSPITALISATION ()
     Route: 065
  5. EXVIERA [Interacting]
     Active Substance: DASABUVIR
     Indication: CHRONIC HEPATITIS C
  6. LERCANIDIPINE [Interacting]
     Active Substance: LERCANIDIPINE
     Indication: HYPERTENSION
     Dosage: 4 WEEKS BEFORE ADR - TILL HOSPIALISATION ()
     Route: 016
  7. ACETYLSALICYLIC ACID [Concomitant]
     Active Substance: ASPIRIN
     Indication: PRODUCT USED FOR UNKNOWN INDICATION
     Dosage: CONTINUOSLY
     Route: 065
  8. AMLODIPIN [Concomitant]
     Active Substance: AMLODIPINE BESYLATE
     Indication: PRODUCT USED FOR UNKNOWN INDICATION
     Dosage: DURING HOSPITALISATION
     Route: 065
  9. METOPROLOL. [Suspect]
     Active Substance: METOPROLOL
     Indication: PRODUCT USED FOR UNKNOWN INDICATION
     Dosage: TAKEN MORE THAN YEAR
     Route: 065
  10. ZOFENOPRIL [Concomitant]
     Active Substance: ZOFENOPRIL
     Indication: PRODUCT USED FOR UNKNOWN INDICATION
     Dosage: CONTINUOSLY
     Route: 065

REACTIONS (8)
  - Abdominal pain [Recovered/Resolved]
  - Dyspepsia [Recovered/Resolved]
  - Drug interaction [Recovered/Resolved]
  - Hepatotoxicity [Recovering/Resolving]
  - Nausea [Recovered/Resolved]
  - Aspartate aminotransferase increased [Recovering/Resolving]
  - Alanine aminotransferase increased [Recovered/Resolved]
  - Abdominal pain upper [Recovered/Resolved]
